FAERS Safety Report 6852473-2 (Version None)
Quarter: 2010Q3

REPORT INFORMATION
  Report Type: 
  Country: None (occurrence: None)
  Receive Date: 20100717
  Receipt Date: 20071113
  Transmission Date: 20110219
  Serious: No
  Sender: FDA-Public Use
  Company Number: US-PFIZER INC-2007098197

PATIENT
  Sex: Male
  Weight: 97.5 kg

DRUGS (6)
  1. CHANTIX [Suspect]
     Indication: SMOKING CESSATION THERAPY
     Dates: start: 20071029
  2. TRICOR [Concomitant]
  3. PLAVIX [Concomitant]
  4. TYLENOL [Concomitant]
  5. ACETYLSALICYLIC ACID [Concomitant]
  6. PREVACID [Concomitant]

REACTIONS (1)
  - NAUSEA [None]
